FAERS Safety Report 12838874 (Version 1)
Quarter: 2016Q4

REPORT INFORMATION
  Report Type: Spontaneous
  Country: FR (occurrence: FR)
  Receive Date: 20161012
  Receipt Date: 20161012
  Transmission Date: 20170207
  Serious: Yes (Hospitalization)
  Sender: FDA-Public Use
  Company Number: FR-CLINIGEN GROUP PLC/ CLINIGEN HEALTHCARE LTD-E2B_00004151

PATIENT
  Age: 27 Year
  Sex: Male

DRUGS (16)
  1. COTRIMOXAZOLE [Concomitant]
     Active Substance: SULFAMETHOXAZOLE\TRIMETHOPRIM
     Indication: PRODUCT USED FOR UNKNOWN INDICATION
  2. RIFABUTIN. [Concomitant]
     Active Substance: RIFABUTIN
     Indication: PYREXIA
     Dates: start: 199207
  3. FOSCARNET?SODIUM [Suspect]
     Active Substance: FOSCARNET SODIUM
     Route: 042
     Dates: start: 19930828, end: 199309
  4. GANCICLOVIR. [Concomitant]
     Active Substance: GANCICLOVIR
     Indication: CYTOMEGALOVIRUS INFECTION
     Dates: start: 199207, end: 199208
  5. GANCICLOVIR. [Concomitant]
     Active Substance: GANCICLOVIR
     Dates: start: 199306, end: 199306
  6. ETHAMBUTOL [Concomitant]
     Active Substance: ETHAMBUTOL HYDROCHLORIDE
     Indication: PYREXIA
     Dates: start: 199207
  7. FOSCARNET?SODIUM [Suspect]
     Active Substance: FOSCARNET SODIUM
     Route: 042
     Dates: start: 199308, end: 199309
  8. GANCICLOVIR. [Concomitant]
     Active Substance: GANCICLOVIR
     Dates: start: 199302, end: 199302
  9. DIPHENOXYLATE [Concomitant]
     Active Substance: DIPHENOXYLATE
     Indication: PRODUCT USED FOR UNKNOWN INDICATION
  10. ACETORPHAN [Concomitant]
     Indication: PRODUCT USED FOR UNKNOWN INDICATION
  11. FLUCONAZOLE. [Concomitant]
     Active Substance: FLUCONAZOLE
     Indication: PRODUCT USED FOR UNKNOWN INDICATION
  12. GANCICLOVIR. [Concomitant]
     Active Substance: GANCICLOVIR
     Dates: start: 199309, end: 199309
  13. CEFTAZIDIME. [Concomitant]
     Active Substance: CEFTAZIDIME
     Indication: PRODUCT USED FOR UNKNOWN INDICATION
  14. PAROMOMYCIN [Concomitant]
     Active Substance: PAROMOMYCIN
     Indication: PRODUCT USED FOR UNKNOWN INDICATION
  15. LOPERAMIDE [Concomitant]
     Active Substance: LOPERAMIDE
     Indication: PRODUCT USED FOR UNKNOWN INDICATION
  16. FOSCARNET?SODIUM [Suspect]
     Active Substance: FOSCARNET SODIUM
     Indication: CYTOMEGALOVIRUS INFECTION
     Route: 042
     Dates: start: 199301, end: 199302

REACTIONS (4)
  - Acute kidney injury [Recovering/Resolving]
  - Blood creatinine increased [Recovering/Resolving]
  - Crystal nephropathy [Unknown]
  - Glomerulonephritis rapidly progressive [Unknown]

NARRATIVE: CASE EVENT DATE: 199301
